FAERS Safety Report 4519398-9 (Version None)
Quarter: 2004Q4

REPORT INFORMATION
  Report Type: 
  Country: None (occurrence: None)
  Receive Date: 20041206
  Receipt Date: 20041201
  Transmission Date: 20050328
  Serious: Yes (Hospitalization)
  Sender: FDA-Public Use
  Company Number: 04-12-1674

PATIENT
  Age: 65 Year
  Sex: Male

DRUGS (1)
  1. CLOZAPINE [Suspect]
     Indication: SCHIZOPHRENIA
     Dosage: 425-525MG QD ORAL
     Route: 048
     Dates: start: 19980301

REACTIONS (2)
  - HYPERCALCAEMIA [None]
  - MENTAL STATUS CHANGES [None]
